FAERS Safety Report 21211159 (Version 1)
Quarter: 2022Q3

REPORT INFORMATION
  Report Type: Spontaneous
  Country: US (occurrence: None)
  Receive Date: 20220812
  Receipt Date: 20220812
  Transmission Date: 20221027
  Serious: No
  Sender: FDA-Public Use
  Company Number: None

PATIENT
  Sex: Female

DRUGS (3)
  1. DALFAMPRIDINE [Suspect]
     Active Substance: DALFAMPRIDINE
  2. CARBAMAZEPINE [Suspect]
     Active Substance: CARBAMAZEPINE
  3. PROLIA [Concomitant]
     Active Substance: DENOSUMAB
     Dosage: OTHER FREQUENCY : EVERY 6 MONTHS ;?
     Route: 058
     Dates: start: 202012

REACTIONS (3)
  - Trigeminal neuralgia [None]
  - Condition aggravated [None]
  - Blood sodium decreased [None]
